FAERS Safety Report 8796605 (Version 1)
Quarter: 2012Q4

REPORT INFORMATION
  Report Type: 
  Country: US (occurrence: US)
  Receive Date: 20120919
  Receipt Date: 20120919
  Transmission Date: 20130627
  Serious: Yes (Congenital Anomaly)
  Sender: FDA-Public Use
  Company Number: US-009507513-1007USA02118B1

PATIENT
  Age: 1 Day
  Sex: Male
  Weight: 2.8 kg

DRUGS (9)
  1. ISENTRESS [Suspect]
     Route: 064
     Dates: start: 20091217
  2. REYATAZ [Suspect]
     Dosage: 300 mg, qd
     Route: 064
     Dates: start: 20090924, end: 20091015
  3. TRUVADA [Suspect]
     Dosage: 1 DF, qd
     Route: 064
  4. COMBIVIR [Suspect]
     Dosage: 2 DF, qd
     Route: 064
     Dates: start: 20090728, end: 20090924
  5. KALETRA [Suspect]
     Dosage: 4 DF, qd
     Route: 064
     Dates: start: 20090728, end: 20090924
  6. EPIVIR [Suspect]
     Route: 064
     Dates: start: 20090924
  7. LEXIVA [Suspect]
     Route: 064
     Dates: start: 20091015, end: 20091217
  8. NORVIR [Suspect]
     Route: 064
     Dates: start: 20091015
  9. VIREAD [Suspect]
     Route: 064
     Dates: start: 20091015

REACTIONS (8)
  - Adrenogenital syndrome [Unknown]
  - Congenital hydronephrosis [Unknown]
  - Ultrasound kidney abnormal [Unknown]
  - Adrenogenital syndrome [Unknown]
  - Hyponatraemia [Unknown]
  - Hypocalcaemia [Unknown]
  - Maternal exposure during pregnancy [Unknown]
  - Foetal exposure during pregnancy [Unknown]
